FAERS Safety Report 5256147-3 (Version None)
Quarter: 2007Q1

REPORT INFORMATION
  Report Type: 
  Country: None (occurrence: None)
  Receive Date: 20061220
  Receipt Date: 20060901
  Transmission Date: 20070707
  Serious: Yes (Hospitalization)
  Sender: FDA-Public Use
  Company Number: 2006RL000260

PATIENT
  Age: 82 Year
  Sex: Female

DRUGS (1)
  1. OMACOR [Suspect]
     Indication: MYOCARDIAL INFARCTION
     Dosage: 1000 MG;QD;PO
     Route: 048
     Dates: start: 20060623, end: 20060626

REACTIONS (1)
  - MALAISE [None]
